FAERS Safety Report 5481171-5 (Version None)
Quarter: 2007Q4

REPORT INFORMATION
  Report Type: 
  Country: None (occurrence: None)
  Receive Date: 20071010
  Receipt Date: 20071002
  Transmission Date: 20080405
  Serious: Yes (Other)
  Sender: FDA-Public Use
  Company Number: PHEH2007US10133

PATIENT
  Age: 51 Year
  Sex: Female

DRUGS (3)
  1. ZELNORM [Suspect]
     Dosage: 6MG, UNK
     Dates: start: 20050601
  2. ASPIRIN [Concomitant]
     Dosage: 81 MG, QD
  3. ACTONEL [Concomitant]
     Dosage: 35 MG, QW

REACTIONS (12)
  - CARDIOMYOPATHY [None]
  - CARDIOVASCULAR INSUFFICIENCY [None]
  - CHEST PAIN [None]
  - CONSTIPATION [None]
  - DECREASED ACTIVITY [None]
  - DILATATION VENTRICULAR [None]
  - EJECTION FRACTION ABNORMAL [None]
  - GASTROINTESTINAL DISORDER [None]
  - HYPERTENSIVE HEART DISEASE [None]
  - HYPOAESTHESIA [None]
  - RESPIRATORY DISORDER [None]
  - SKIN DISCOLOURATION [None]
